FAERS Safety Report 5949814-7 (Version None)
Quarter: 2008Q4

REPORT INFORMATION
  Report Type: 
  Country: None (occurrence: None)
  Receive Date: 20081112
  Receipt Date: 20081031
  Transmission Date: 20090506
  Serious: Yes (Other)
  Sender: FDA-Public Use
  Company Number: FR-BRISTOL-MYERS SQUIBB COMPANY-14361901

PATIENT
  Age: 61 Year
  Sex: Male

DRUGS (1)
  1. MITOMYCIN [Suspect]
     Dosage: ROUTE: IJ
     Dates: start: 20080601, end: 20080805

REACTIONS (2)
  - DERMATITIS BULLOUS [None]
  - PRURITUS [None]
